FAERS Safety Report 18950546 (Version 1)
Quarter: 2021Q1

REPORT INFORMATION
  Report Type: Spontaneous
  Country: US (occurrence: US)
  Receive Date: 20210228
  Receipt Date: 20210228
  Transmission Date: 20210420
  Serious: Yes (Other)
  Sender: FDA-Public Use
  Company Number: US-ROCHE-2668049

PATIENT
  Age: 73 Year
  Sex: Male
  Weight: 90.3 kg

DRUGS (13)
  1. UMECLIDINIUM [Concomitant]
     Active Substance: UMECLIDINIUM BROMIDE
     Dosage: INHALE 1 PUFF ORALLY 1 TIME PER DAY
  2. OMEPRAZOLE. [Concomitant]
     Active Substance: OMEPRAZOLE
     Dosage: TAKE 1 CAPSULE BY MOUTH 1 TIME A DAY
     Route: 048
  3. KETOROLAC [Concomitant]
     Active Substance: KETOROLAC TROMETHAMINE
     Dosage: 1 DROP TO OPERATIVE EYE 3 TIMES A DAY
  4. ROSUVASTATIN. [Concomitant]
     Active Substance: ROSUVASTATIN
     Dosage: TAKE 1 TABLET BY MOUTH 1 TIME PER DAY
     Route: 048
  5. EPINEPHRINE. [Concomitant]
     Active Substance: EPINEPHRINE
     Dosage: INJECT 1 SYRINGE INTRAMUSCULARLY 1 TIME
     Route: 030
  6. LISINOPRIL. [Concomitant]
     Active Substance: LISINOPRIL
     Dosage: TAKE 1 TABLET BY MOUTH 1 TIME PER DAY
     Route: 048
  7. BENRALIZUMAB. [Concomitant]
     Active Substance: BENRALIZUMAB
     Dosage: 30 MG EVERY 4 WEEKS
     Route: 058
  8. CARVEDILOL. [Concomitant]
     Active Substance: CARVEDILOL
     Dosage: TAKE 1 TABLETS BY MOUTH 2 TIMES A DAY WITH MEALS
  9. XOLAIR [Suspect]
     Active Substance: OMALIZUMAB
  10. MONTELUKAST [Concomitant]
     Active Substance: MONTELUKAST SODIUM
     Dosage: TAKE 1 TABLET BY MOUTH EVERY NIGHT AT BEDTIME
     Route: 048
  11. XOLAIR [Suspect]
     Active Substance: OMALIZUMAB
     Indication: PRODUCT USED FOR UNKNOWN INDICATION
     Dosage: ONGOING: NO
     Route: 058
     Dates: start: 20200106, end: 202008
  12. XOLAIR [Suspect]
     Active Substance: OMALIZUMAB
  13. ALBUTEROL. [Concomitant]
     Active Substance: ALBUTEROL
     Dosage: INHALE 2 PUFFS ORALLY EVERY 4?6 HOURS

REACTIONS (1)
  - Prostate cancer [Unknown]

NARRATIVE: CASE EVENT DATE: 202008
